FAERS Safety Report 6663398-X (Version None)
Quarter: 2010Q2

REPORT INFORMATION
  Report Type: 
  Country: None (occurrence: None)
  Receive Date: 20100401
  Receipt Date: 20100326
  Transmission Date: 20101027
  Serious: Yes (Hospitalization, Other)
  Sender: FDA-Public Use
  Company Number: US-PFIZER INC-2010039133

PATIENT
  Sex: Female
  Weight: 58.503 kg

DRUGS (3)
  1. DETROL LA [Suspect]
     Indication: URINARY INCONTINENCE
     Dosage: 4 MG, 1X/DAY
     Route: 048
  2. TOPAMAX [Concomitant]
     Indication: MIGRAINE WITH AURA
     Dosage: 25 MG, 2X/DAY
     Route: 048
  3. ALENDRONATE SODIUM [Concomitant]
     Indication: BONE DISORDER
     Dosage: 70 MG, WEEKLY

REACTIONS (5)
  - HYPERTENSION [None]
  - MITRAL VALVE REPLACEMENT [None]
  - THYROID DISORDER [None]
  - URINARY TRACT OPERATION [None]
  - VULVOVAGINAL DRYNESS [None]
